FAERS Safety Report 4929235-6 (Version None)
Quarter: 2006Q1

REPORT INFORMATION
  Report Type: 
  Country: None (occurrence: None)
  Receive Date: 20060223
  Receipt Date: 20060209
  Transmission Date: 20060701
  Serious: Yes (Hospitalization, Other)
  Sender: FDA-Public Use
  Company Number: EM2006-0098

PATIENT
  Age: 40 Year
  Sex: Male
  Weight: 107 kg

DRUGS (8)
  1. PROLEUKIN [Suspect]
     Indication: METASTATIC MALIGNANT MELANOMA
     Dosage: SEE IMAGE
     Route: 042
     Dates: start: 20060103, end: 20060103
  2. PROLEUKIN [Suspect]
     Indication: METASTATIC MALIGNANT MELANOMA
     Dosage: SEE IMAGE
     Route: 042
     Dates: start: 20060104, end: 20060104
  3. PROLEUKIN [Suspect]
     Indication: METASTATIC MALIGNANT MELANOMA
     Dosage: SEE IMAGE
     Route: 042
     Dates: start: 20060105, end: 20060106
  4. INTERFERON ALFA (INTERFERON ALFA) [Suspect]
     Indication: METASTATIC MALIGNANT MELANOMA
     Dosage: 11 X 10E6, SUBCUTAN.
     Route: 058
     Dates: start: 20060103, end: 20060106
  5. KYTRIL [Concomitant]
  6. PAXIL [Concomitant]
  7. ATIVAN [Concomitant]
  8. BENADRYL [Concomitant]

REACTIONS (3)
  - FEBRILE NEUTROPENIA [None]
  - GOUTY ARTHRITIS [None]
  - PANCREATITIS [None]
